FAERS Safety Report 4341897-3 (Version None)
Quarter: 2004Q2

REPORT INFORMATION
  Report Type: 
  Country: None (occurrence: None)
  Receive Date: 20040415
  Receipt Date: 20040325
  Transmission Date: 20050107
  Serious: Yes (Hospitalization, Other)
  Sender: FDA-Public Use
  Company Number: USA040363107

PATIENT
  Age: 60 Year
  Sex: Female

DRUGS (4)
  1. NPH ILETIN I (BEEF-PORK) [Suspect]
     Dates: end: 19940101
  2. ILETIN [Suspect]
     Dates: end: 19940101
  3. HUMULIN R [Suspect]
     Dosage: 50 U DAY
     Dates: start: 19940101
  4. HUMULIN N [Suspect]
     Dosage: 60 U DAY
     Dates: start: 19940101

REACTIONS (4)
  - EYE EXCISION [None]
  - LEG AMPUTATION [None]
  - POOR PERIPHERAL CIRCULATION [None]
  - VISUAL ACUITY REDUCED [None]
